FAERS Safety Report 23930036 (Version 2)
Quarter: 2024Q3

REPORT INFORMATION
  Report Type: Report from Study
  Country: US (occurrence: US)
  Receive Date: 20240601
  Receipt Date: 20240710
  Transmission Date: 20241017
  Serious: No
  Sender: BOEHRINGER INGELHEIM
  Company Number: US-BoehringerIngelheim-2024-BI-031283

PATIENT
  Sex: Female

DRUGS (3)
  1. OFEV [Suspect]
     Active Substance: NINTEDANIB
     Indication: Lung disorder
     Dosage: WITH FOOD
     Route: 048
  2. OFEV [Suspect]
     Active Substance: NINTEDANIB
     Dosage: 100MG ONCE A DAY IN THE MORNING AND 150MG ONCE A DAY AT NIGHT
     Route: 048
  3. PRASUGREL [Suspect]
     Active Substance: PRASUGREL
     Indication: Thrombosis

REACTIONS (4)
  - Epistaxis [Not Recovered/Not Resolved]
  - Cardiac operation [Unknown]
  - Drug interaction [Not Recovered/Not Resolved]
  - Blister [Unknown]
